FAERS Safety Report 7084273-5 (Version None)
Quarter: 2010Q4

REPORT INFORMATION
  Report Type: 
  Country: None (occurrence: None)
  Receive Date: 20101104
  Receipt Date: 20101101
  Transmission Date: 20110411
  Serious: Yes (Other)
  Sender: FDA-Public Use
  Company Number: JP-PFIZER INC-2010108631

PATIENT
  Age: 65 Year
  Sex: Female

DRUGS (3)
  1. DIFLUCAN [Suspect]
     Indication: CRYPTOCOCCOSIS
     Dosage: 200 MG, 2X/DAY
     Route: 048
     Dates: start: 20100701
  2. DIFLUCAN [Suspect]
     Dosage: 200 MG, 1X/DAY
  3. PROGRAF [Concomitant]
     Indication: MUSCULOSKELETAL PAIN

REACTIONS (2)
  - RASH [None]
  - RENAL IMPAIRMENT [None]
